FAERS Safety Report 15736366 (Version 1)
Quarter: 2018Q4

REPORT INFORMATION
  Report Type: Spontaneous
  Country: US (occurrence: US)
  Receive Date: 20181218
  Receipt Date: 20181218
  Transmission Date: 20190205
  Serious: Yes (Other)
  Sender: FDA-Public Use
  Company Number: US-AKORN PHARMACEUTICALS-2018AKN01876

PATIENT
  Age: 12 Year
  Sex: Female
  Weight: 50.34 kg

DRUGS (3)
  1. MYORISAN [Suspect]
     Active Substance: ISOTRETINOIN
     Indication: ACNE
     Dosage: 40 MG, 1X/DAY WITH FOOD
     Route: 048
     Dates: start: 20180925, end: 201810
  2. MYORISAN [Suspect]
     Active Substance: ISOTRETINOIN
     Indication: ACNE
     Dosage: 20 MG, 1X/DAY, WITH FOOD
     Route: 048
     Dates: start: 20181019, end: 20181120
  3. PREDNISONE. [Concomitant]
     Active Substance: PREDNISONE
     Dosage: 10 MG, 1X/DAY
     Route: 048

REACTIONS (5)
  - Off label use [Recovered/Resolved]
  - Suicidal ideation [Recovering/Resolving]
  - Arthralgia [Recovering/Resolving]
  - Heart rate increased [Recovering/Resolving]
  - Depression [Recovering/Resolving]

NARRATIVE: CASE EVENT DATE: 2018
